FAERS Safety Report 9910130 (Version 1)
Quarter: 2014Q1

REPORT INFORMATION
  Report Type: Spontaneous
  Country: US (occurrence: None)
  Receive Date: 20140218
  Receipt Date: 20140218
  Transmission Date: 20141002
  Serious: Yes (Hospitalization)
  Sender: FDA-Public Use
  Company Number: None

PATIENT
  Age: 45 Year
  Sex: Male

DRUGS (2)
  1. ANDROGEL [Suspect]
     Route: 061
  2. TESTOSTERONE CYPIONATE [Suspect]

REACTIONS (1)
  - Cerebrovascular accident [None]
